FAERS Safety Report 6841490-4 (Version None)
Quarter: 2010Q3

REPORT INFORMATION
  Report Type: 
  Country: None (occurrence: None)
  Receive Date: 20100714
  Receipt Date: 20070705
  Transmission Date: 20110219
  Serious: No
  Sender: FDA-Public Use
  Company Number: US-PFIZER INC-2007056573

PATIENT
  Age: 70 Year
  Sex: Female
  Weight: 90 kg

DRUGS (10)
  1. CHANTIX [Suspect]
     Indication: SMOKING CESSATION THERAPY
     Dates: start: 20070625
  2. ACCUPRIL [Concomitant]
  3. TOPROL-XL [Concomitant]
  4. PRAVASTATIN [Concomitant]
  5. NORVASC [Concomitant]
  6. LASIX [Concomitant]
  7. PREMPRO [Concomitant]
  8. POTASSIUM CHLORIDE [Concomitant]
  9. ACETYLSALICYLIC ACID [Concomitant]
  10. VICODIN [Concomitant]

REACTIONS (3)
  - MALAISE [None]
  - NAUSEA [None]
  - TREMOR [None]
